FAERS Safety Report 10449080 (Version 1)
Quarter: 2014Q3

REPORT INFORMATION
  Report Type: Spontaneous
  Country: US (occurrence: None)
  Receive Date: 20140911
  Receipt Date: 20140911
  Transmission Date: 20150326
  Serious: No
  Sender: FDA-Public Use
  Company Number: None

PATIENT
  Age: 84 Year
  Sex: Female

DRUGS (1)
  1. DEPO-MEDROL [Suspect]
     Active Substance: METHYLPREDNISOLONE ACETATE
     Dates: start: 20140809, end: 20140809

REACTIONS (5)
  - Injection site swelling [None]
  - Staphylococcal infection [None]
  - Injection site discomfort [None]
  - Product contamination microbial [None]
  - Injection site erythema [None]

NARRATIVE: CASE EVENT DATE: 20140809
